FAERS Safety Report 10755274 (Version 2)
Quarter: 2015Q1

REPORT INFORMATION
  Report Type: Spontaneous
  Country: US (occurrence: US)
  Receive Date: 20150202
  Receipt Date: 20150220
  Transmission Date: 20150721
  Serious: Yes (Death, Hospitalization, Other)
  Sender: FDA-Public Use
  Company Number: US-JNJFOC-20150200095

PATIENT
  Age: 81 Year
  Sex: Male

DRUGS (18)
  1. IMBRUVICA [Suspect]
     Active Substance: IBRUTINIB
     Indication: CHRONIC LYMPHOCYTIC LEUKAEMIA
     Route: 048
     Dates: start: 20141222, end: 20150108
  2. LOVASTATIN. [Concomitant]
     Active Substance: LOVASTATIN
     Dates: end: 20150102
  3. CLARITIN [Concomitant]
     Active Substance: LORATADINE
     Dates: end: 20150102
  4. LISINOPRIL. [Concomitant]
     Active Substance: LISINOPRIL
     Dates: end: 20150102
  5. BENADRYL [Concomitant]
     Active Substance: DIPHENHYDRAMINE HYDROCHLORIDE
     Dates: end: 20150102
  6. ALLOPURINOL. [Concomitant]
     Active Substance: ALLOPURINOL
     Dates: end: 20150102
  7. ZOFRAN [Concomitant]
     Active Substance: ONDANSETRON HYDROCHLORIDE
     Dates: end: 20150102
  8. FLOMAX [Concomitant]
     Active Substance: TAMSULOSIN HYDROCHLORIDE
  9. CELEXA [Concomitant]
     Active Substance: CITALOPRAM HYDROBROMIDE
     Dates: end: 20150102
  10. IMBRUVICA [Suspect]
     Active Substance: IBRUTINIB
     Indication: CHRONIC LYMPHOCYTIC LEUKAEMIA
     Route: 048
  11. CETIRIZINE [Concomitant]
     Active Substance: CETIRIZINE HYDROCHLORIDE
  12. METOPROLOL [Concomitant]
     Active Substance: METOPROLOL
  13. ASPIRIN. [Concomitant]
     Active Substance: ASPIRIN
     Dates: end: 2015
  14. REMERON [Concomitant]
     Active Substance: MIRTAZAPINE
  15. IBUPROFEN. [Concomitant]
     Active Substance: IBUPROFEN
     Dates: end: 20150102
  16. NORCO [Concomitant]
     Active Substance: ACETAMINOPHEN\HYDROCODONE BITARTRATE
     Dosage: 5/325 MG , ONE TO TWO EVERY 4 HOURS PRN
  17. COMPAZINE [Concomitant]
     Active Substance: PROCHLORPERAZINE MALEATE
     Dates: end: 20150102
  18. ACICLOVIR [Concomitant]
     Active Substance: ACYCLOVIR

REACTIONS (21)
  - Disease progression [Fatal]
  - Dehydration [Unknown]
  - Leukocytosis [Recovered/Resolved]
  - Cough [Unknown]
  - Failure to thrive [Unknown]
  - Dyspnoea [Unknown]
  - Fatigue [Unknown]
  - Renal failure [Unknown]
  - Fall [Unknown]
  - Nausea [Unknown]
  - Ascites [Unknown]
  - Dry mouth [Unknown]
  - Anaemia [Unknown]
  - Contusion [Unknown]
  - Decreased appetite [Unknown]
  - Dizziness [Unknown]
  - Thrombocytopenia [Unknown]
  - Asthenia [Unknown]
  - Petechiae [Unknown]
  - Oedema peripheral [Unknown]
  - Bundle branch block right [Unknown]

NARRATIVE: CASE EVENT DATE: 20141231
